FAERS Safety Report 5886325-1 (Version None)
Quarter: 2008Q3

REPORT INFORMATION
  Report Type: 
  Country: None (occurrence: None)
  Receive Date: 20080917
  Receipt Date: 20080909
  Transmission Date: 20090109
  Serious: Yes (Hospitalization, Congenital Anomaly)
  Sender: FDA-Public Use
  Company Number: B0513414A

PATIENT
  Sex: Female

DRUGS (1)
  1. LAMICTAL [Suspect]
     Indication: EPILEPSY
     Dosage: 50MG PER DAY
     Dates: start: 20070101, end: 20080101

REACTIONS (2)
  - CONGENITAL OVARIAN ANOMALY [None]
  - DRUG EXPOSURE DURING PREGNANCY [None]
